FAERS Safety Report 25701047 (Version 1)
Quarter: 2025Q3

REPORT INFORMATION
  Report Type: Spontaneous
  Country: GB (occurrence: GB)
  Receive Date: 20250819
  Receipt Date: 20250819
  Transmission Date: 20251021
  Serious: Yes (Life-Threatening, Hospitalization, Other)
  Sender: ACCORD
  Company Number: None

PATIENT
  Age: 78 Year
  Sex: Male

DRUGS (16)
  1. CARBOPLATIN [Suspect]
     Active Substance: CARBOPLATIN
     Indication: Product used for unknown indication
  2. GEMCITABINE [Suspect]
     Active Substance: GEMCITABINE
     Indication: Product used for unknown indication
  3. CELECOXIB [Concomitant]
     Active Substance: CELECOXIB
  4. MIRABEGRON [Concomitant]
     Active Substance: MIRABEGRON
  5. MIRTAZAPINE [Concomitant]
     Active Substance: MIRTAZAPINE
  6. OMEPRAZOLE [Concomitant]
     Active Substance: OMEPRAZOLE
  7. FERROUS FUMARATE [Concomitant]
     Active Substance: FERROUS FUMARATE
  8. BUDESONIDE [Concomitant]
     Active Substance: BUDESONIDE
  9. METOCLOPRAMIDE [Concomitant]
     Active Substance: METOCLOPRAMIDE
  10. LIDOCAINE [Concomitant]
     Active Substance: LIDOCAINE
  11. OXYCODONE HYDROCHLORIDE [Concomitant]
     Active Substance: OXYCODONE HYDROCHLORIDE
  12. OXYCODONE HYDROCHLORIDE [Concomitant]
     Active Substance: OXYCODONE HYDROCHLORIDE
  13. POLYETHYLENE GLYCOLS [Concomitant]
     Active Substance: POLYETHYLENE GLYCOLS
  14. SODIUM ALGINATE [Concomitant]
     Active Substance: SODIUM ALGINATE
  15. DULOXETINE [Concomitant]
     Active Substance: DULOXETINE
  16. ASPIRIN [Concomitant]
     Active Substance: ASPIRIN

REACTIONS (1)
  - Neutropenic sepsis [Recovered/Resolved]
